FAERS Safety Report 15895473 (Version 1)
Quarter: 2019Q1

REPORT INFORMATION
  Report Type: Spontaneous
  Country: IT (occurrence: IT)
  Receive Date: 20190131
  Receipt Date: 20190131
  Transmission Date: 20190417
  Serious: Yes (Other)
  Sender: FDA-Public Use
  Company Number: IT-BAYER-200512150GDS

PATIENT
  Age: 41 Year
  Sex: Female

DRUGS (1)
  1. AVALOX [Suspect]
     Active Substance: MOXIFLOXACIN HYDROCHLORIDE
     Indication: BRONCHITIS
     Dosage: 400 MG, QD
     Route: 048
     Dates: start: 20050702, end: 20050703

REACTIONS (6)
  - Oedema peripheral [Recovered/Resolved]
  - Localised oedema [Recovered/Resolved]
  - Erythema [Unknown]
  - Angioedema [Recovered/Resolved]
  - Oedema peripheral [Recovered/Resolved]
  - Localised oedema [Unknown]

NARRATIVE: CASE EVENT DATE: 20050703
